FAERS Safety Report 7390354-9 (Version None)
Quarter: 2011Q2

REPORT INFORMATION
  Report Type: 
  Country: None (occurrence: None)
  Receive Date: 20110401
  Receipt Date: 20110323
  Transmission Date: 20111010
  Serious: Yes (Other)
  Sender: FDA-Public Use
  Company Number: IT-GENENTECH-315150

PATIENT
  Sex: Male

DRUGS (8)
  1. ENDOXAN [Concomitant]
     Indication: PRODUCT USED FOR UNKNOWN INDICATION
     Dosage: DRUG NAME: CYCLOPHOSPHAMIDE/ENDOXAN BAXTER.
  2. MABTHERA [Suspect]
     Indication: CHRONIC LYMPHOCYTIC LEUKAEMIA
     Dosage: 664 MG, UNK
     Route: 042
     Dates: start: 20110301, end: 20110301
  3. FLUDARABINA [Concomitant]
     Indication: PRODUCT USED FOR UNKNOWN INDICATION
     Dosage: 32 MG, UNK
     Route: 042
  4. ANTRA [Concomitant]
     Indication: PRODUCT USED FOR UNKNOWN INDICATION
     Dosage: UNK
  5. NAVOBAN [Concomitant]
     Indication: PRODUCT USED FOR UNKNOWN INDICATION
     Dosage: UNK
  6. ATARAX [Concomitant]
     Indication: PRODUCT USED FOR UNKNOWN INDICATION
     Dosage: 25 MG, UNK
     Route: 048
  7. HYDROCORTISONE [Concomitant]
     Indication: PRODUCT USED FOR UNKNOWN INDICATION
     Dosage: 250 MG, UNK
     Route: 042
  8. DECADRON [Concomitant]
     Indication: PRODUCT USED FOR UNKNOWN INDICATION
     Dosage: 8 MG, UNK
     Route: 042

REACTIONS (4)
  - DYSPNOEA [None]
  - FEELING HOT [None]
  - HYPOTENSION [None]
  - CHILLS [None]
